FAERS Safety Report 4569574-4 (Version None)
Quarter: 2005Q1

REPORT INFORMATION
  Report Type: 
  Country: None (occurrence: None)
  Receive Date: 20050201
  Receipt Date: 20050114
  Transmission Date: 20050727
  Serious: Yes (Other)
  Sender: FDA-Public Use
  Company Number: 2005-01-0940

PATIENT
  Age: 38 Year
  Sex: Female

DRUGS (1)
  1. CELESTONE [Suspect]
     Indication: RHINITIS ALLERGIC
     Dosage: 4 MG QD ORAL
     Route: 048
     Dates: start: 20041201

REACTIONS (8)
  - ANGIONEUROTIC OEDEMA [None]
  - ANXIETY [None]
  - DYSPNOEA [None]
  - EPISTAXIS [None]
  - INSOMNIA [None]
  - OEDEMA PERIPHERAL [None]
  - PARAESTHESIA [None]
  - STRESS [None]
